FAERS Safety Report 9983159 (Version 1)
Quarter: 2014Q1

REPORT INFORMATION
  Report Type: Spontaneous
  Country: US (occurrence: US)
  Receive Date: 20140307
  Receipt Date: 20140307
  Transmission Date: 20141002
  Serious: Yes (Other)
  Sender: FDA-Public Use
  Company Number: US-PFIZER INC-2014065352

PATIENT
  Age: 78 Year
  Sex: Male

DRUGS (4)
  1. CELEBREX [Suspect]
     Dosage: UNK
  2. ADVIL [Suspect]
     Dosage: UNK
  3. TYLENOL [Suspect]
     Dosage: UNK
  4. FLEXERIL [Suspect]
     Indication: MUSCLE RELAXANT THERAPY
     Dosage: UNK

REACTIONS (3)
  - Biliary cirrhosis primary [Unknown]
  - Liver disorder [Unknown]
  - Fall [Unknown]
